FAERS Safety Report 4721108-7 (Version None)
Quarter: 2005Q3

REPORT INFORMATION
  Report Type: 
  Country: None (occurrence: None)
  Receive Date: 20050719
  Receipt Date: 20040901
  Transmission Date: 20060218
  Serious: Yes (Hospitalization)
  Sender: FDA-Public Use
  Company Number: 2004231225US

PATIENT
  Age: 37 Year
  Sex: Male
  Weight: 131.5 kg

DRUGS (2)
  1. CELEBREX [Suspect]
     Dosage: 200 MG, QD
     Dates: start: 20000601, end: 20000901
  2. LASIX [Concomitant]

REACTIONS (1)
  - CHEST PAIN [None]
